FAERS Safety Report 9921945 (Version 2)
Quarter: 2014Q2

REPORT INFORMATION
  Report Type: Report from Study
  Country: FR (occurrence: FR)
  Receive Date: 20140225
  Receipt Date: 20140630
  Transmission Date: 20141212
  Serious: Yes (Life-Threatening, Hospitalization)
  Sender: FDA-Public Use
  Company Number: PHHY2014FR022148

PATIENT
  Age: 76 Year
  Sex: Female

DRUGS (9)
  1. CERTICAN [Suspect]
     Indication: IMMUNOSUPPRESSION
     Dates: start: 20100927, end: 20120229
  2. CERTICAN [Suspect]
     Dates: start: 20130814, end: 20131113
  3. PREDNISOLONE [Suspect]
     Indication: IMMUNOSUPPRESSION
     Dates: start: 20111109, end: 20111227
  4. PREDNISOLONE [Suspect]
     Dates: start: 20120201, end: 20130124
  5. PREDNISOLONE [Suspect]
     Dates: start: 20130306, end: 20130606
  6. PREDNISOLONE [Suspect]
     Dates: start: 20130911
  7. ADVAGRAF [Suspect]
     Indication: IMMUNOSUPPRESSION
     Dates: start: 20120220, end: 20130814
  8. ADVAGRAF [Suspect]
     Dates: start: 20131113
  9. CELLCEPT [Suspect]
     Indication: IMMUNOSUPPRESSION
     Dates: start: 20100927, end: 20120320

REACTIONS (2)
  - Renal failure acute [Unknown]
  - Dyspnoea [Unknown]
